FAERS Safety Report 5781833-6 (Version None)
Quarter: 2008Q2

REPORT INFORMATION
  Report Type: 
  Country: None (occurrence: None)
  Receive Date: 20080623
  Receipt Date: 20080401
  Transmission Date: 20081010
  Serious: No
  Sender: FDA-Public Use
  Company Number: US-ASTRAZENECA-2008UW06525

PATIENT
  Age: 63 Year
  Sex: Female
  Weight: 81.6 kg

DRUGS (8)
  1. RHINOCORT [Suspect]
     Indication: NASAL CONGESTION
     Dosage: 1 SPRAY EACH NOSTRIL
     Route: 045
  2. CARDIZEM [Concomitant]
  3. COZAAR [Concomitant]
  4. POTASSIUM CHLORIDE [Concomitant]
  5. LASIX [Concomitant]
  6. COMBIVENT [Concomitant]
  7. ATIVAN [Concomitant]
  8. PREVACID [Concomitant]

REACTIONS (2)
  - CORNEAL ABRASION [None]
  - DRY EYE [None]
